FAERS Safety Report 6419323-X (Version None)
Quarter: 2009Q4

REPORT INFORMATION
  Report Type: 
  Country: None (occurrence: None)
  Receive Date: 20091027
  Receipt Date: 20091013
  Transmission Date: 20100525
  Serious: Yes (Hospitalization)
  Sender: FDA-Public Use
  Company Number: DE-1171258

PATIENT
  Age: 90 Year

DRUGS (1)
  1. CYCLOPENTOLATE HCL [Suspect]
     Dosage: OPHTHALMIC
     Route: 047

REACTIONS (10)
  - CONFUSIONAL STATE [None]
  - DISORIENTATION [None]
  - DRUG TOXICITY [None]
  - GAIT DISTURBANCE [None]
  - HEMIANOPIA [None]
  - HEMIPARESIS [None]
  - ISCHAEMIA [None]
  - PSYCHOMOTOR HYPERACTIVITY [None]
  - RETROGRADE AMNESIA [None]
  - SPEECH DISORDER [None]
